FAERS Safety Report 23705013 (Version 1)
Quarter: 2024Q2

REPORT INFORMATION
  Report Type: Spontaneous
  Country: US (occurrence: US)
  Receive Date: 20240404
  Receipt Date: 20240404
  Transmission Date: 20240716
  Serious: No
  Sender: FDA-Public Use
  Company Number: US-CADILA HEALTHCARE LIMITED-US-ZYDUS-103297

PATIENT

DRUGS (1)
  1. LENALIDOMIDE [Suspect]
     Active Substance: LENALIDOMIDE
     Indication: Follicular lymphoma stage II
     Dosage: 20 MILLIGRAM, QD FOR 14 DAYS THEN 7 DAYS OFF
     Route: 048
     Dates: start: 202310

REACTIONS (2)
  - Product use in unapproved indication [Not Recovered/Not Resolved]
  - Product dose omission issue [Recovered/Resolved]
